FAERS Safety Report 8623892 (Version 2)
Quarter: 2012Q4

REPORT INFORMATION
  Report Type: Report from Study
  Country: JP (occurrence: JP)
  Receive Date: 20120620
  Receipt Date: 20121221
  Transmission Date: 20130627
  Serious: Yes (Hospitalization)
  Sender: FDA-Public Use
  Company Number: JP-VERTEX PHARMACEUTICALS INC.-AE-2012-008787

PATIENT
  Age: 57 Year
  Sex: Female

DRUGS (5)
  1. VX-950 (TELAPREVIR) [Suspect]
     Indication: CHRONIC HEPATITIS C
     Dosage: 2250 mg, qd
     Route: 048
     Dates: start: 20120403, end: 20120510
  2. REBETOL [Suspect]
     Indication: CHRONIC HEPATITIS C
     Dosage: 600 mg, qd
     Route: 048
     Dates: start: 20120403, end: 20120430
  3. REBETOL [Suspect]
     Dosage: 200 mg, qd
     Route: 048
     Dates: start: 20120501, end: 20120509
  4. PEGINTERFERON ALFA-2B [Concomitant]
     Indication: CHRONIC HEPATITIS C
     Dosage: 80 ?g/kg, qw
     Route: 058
     Dates: start: 20120403, end: 20120507
  5. URSO                               /00465701/ [Concomitant]
     Dosage: 600 mg, qd
     Route: 048

REACTIONS (2)
  - Urinary tract infection [Recovered/Resolved]
  - Blood creatinine increased [Recovered/Resolved]
